FAERS Safety Report 7686778-2 (Version None)
Quarter: 2011Q3

REPORT INFORMATION
  Report Type: 
  Country: None (occurrence: None)
  Receive Date: 20110816
  Receipt Date: 20110805
  Transmission Date: 20111222
  Serious: Yes (Other)
  Sender: FDA-Public Use
  Company Number: PHHY2011US71630

PATIENT
  Age: 56 Year
  Sex: Male

DRUGS (5)
  1. TRIAMCINOLONE [Suspect]
     Dosage: 2 ML, UNK
     Route: 008
  2. SODIUM CHLORIDE SOLUTION [Concomitant]
     Dosage: 5 ML, UNK
     Route: 008
  3. LIDOCAINE [Concomitant]
     Dosage: 2 ML, UNK
     Route: 008
  4. AMITRIPTYLINE HCL [Concomitant]
  5. ZALEPLON [Concomitant]

REACTIONS (5)
  - EPIDURAL LIPOMATOSIS [None]
  - FAT TISSUE INCREASED [None]
  - MUSCLE STRAIN [None]
  - HYPOAESTHESIA [None]
  - PARAESTHESIA [None]
